FAERS Safety Report 9109490 (Version 1)
Quarter: 2013Q1

REPORT INFORMATION
  Report Type: Spontaneous
  Country: HU (occurrence: HU)
  Receive Date: 20130222
  Receipt Date: 20130222
  Transmission Date: 20140127
  Serious: Yes (Other)
  Sender: FDA-Public Use
  Company Number: PHHY2013HU017555

PATIENT
  Age: 46 Year
  Sex: Female

DRUGS (1)
  1. AMOXICILLIN-CLAVULANIC ACID [Suspect]
     Indication: ERYSIPELAS
     Dosage: 1500 MG, DAILY DOSE
     Route: 048

REACTIONS (7)
  - Necrotising fasciitis [Unknown]
  - Drug ineffective [Unknown]
  - Leukocytosis [Unknown]
  - Thrombocytosis [Unknown]
  - Soft tissue necrosis [Unknown]
  - Rash pustular [Unknown]
  - Blister [Unknown]
